FAERS Safety Report 5159588-8 (Version None)
Quarter: 2006Q4

REPORT INFORMATION
  Report Type: 
  Country: None (occurrence: None)
  Receive Date: 20061129
  Receipt Date: 20061117
  Transmission Date: 20070319
  Serious: Yes (Disabling)
  Sender: FDA-Public Use
  Company Number: PHBS2006IT17935

PATIENT
  Age: 41 Year
  Sex: Female

DRUGS (1)
  1. ZOMETA [Suspect]
     Indication: BREAST CANCER
     Dosage: 4 MG, EVERY 1 MONTH
     Route: 042
     Dates: start: 20030821, end: 20060510

REACTIONS (3)
  - INFLAMMATION [None]
  - OSTEONECROSIS [None]
  - PLASTIC SURGERY [None]
